FAERS Safety Report 10079714 (Version 2)
Quarter: 2014Q2

REPORT INFORMATION
  Report Type: Spontaneous
  Country: US (occurrence: US)
  Receive Date: 20140415
  Receipt Date: 20140415
  Transmission Date: 20141212
  Serious: No
  Sender: FDA-Public Use
  Company Number: US-ASTRAZENECA-2011SE33494

PATIENT
  Age: 60 Year
  Sex: Female
  Weight: 81.6 kg

DRUGS (5)
  1. NEXIUM [Suspect]
     Indication: GASTRIC DISORDER
     Dosage: DAILY
     Route: 048
  2. NEXIUM [Suspect]
     Indication: GASTRIC DISORDER
     Route: 048
     Dates: start: 2002, end: 201307
  3. OMEPRAZOLE OTC [Suspect]
     Indication: GASTRIC DISORDER
     Route: 048
     Dates: start: 201307
  4. ESTROGEN [Concomitant]
     Indication: HYSTERECTOMY
     Dosage: 2 PATCHES A WEEK UNK
     Route: 061
     Dates: start: 1994
  5. FIORIANAL [Concomitant]
     Indication: MIGRAINE
     Dosage: UNK PRN
     Route: 048
     Dates: start: 1994

REACTIONS (7)
  - Fatigue [None]
  - Vomiting [Not Recovered/Not Resolved]
  - Diarrhoea [Not Recovered/Not Resolved]
  - Nausea [Not Recovered/Not Resolved]
  - Intentional product misuse [Not Recovered/Not Resolved]
  - Off label use [Not Recovered/Not Resolved]
  - Drug ineffective [Not Recovered/Not Resolved]
